FAERS Safety Report 9127412 (Version 1)
Quarter: 2013Q1

REPORT INFORMATION
  Report Type: Spontaneous
  Country: US (occurrence: US)
  Receive Date: 20130228
  Receipt Date: 20130228
  Transmission Date: 20140127
  Serious: No
  Sender: FDA-Public Use
  Company Number: US-GLAXOSMITHKLINE-A0974207A

PATIENT
  Sex: Male

DRUGS (1)
  1. LAMICTAL [Suspect]
     Route: 048

REACTIONS (6)
  - Rash generalised [Not Recovered/Not Resolved]
  - Skin discolouration [Unknown]
  - Blister [Unknown]
  - Skin exfoliation [Unknown]
  - Pruritus [Unknown]
  - Throat irritation [Unknown]
